FAERS Safety Report 9522336 (Version 1)
Quarter: 2013Q3

REPORT INFORMATION
  Report Type: Spontaneous
  Country: JP (occurrence: JP)
  Receive Date: 20130913
  Receipt Date: 20130913
  Transmission Date: 20140515
  Serious: Yes (Other)
  Sender: FDA-Public Use
  Company Number: JP-JNJFOC-20130906468

PATIENT
  Sex: 0

DRUGS (2)
  1. REMICADE [Suspect]
     Indication: COLITIS ULCERATIVE
     Route: 042
  2. PROGRAF [Suspect]
     Indication: COLITIS ULCERATIVE
     Route: 048
     Dates: start: 2013, end: 2013

REACTIONS (1)
  - Cytomegalovirus infection [Unknown]
